FAERS Safety Report 15857642 (Version 1)
Quarter: 2019Q1

REPORT INFORMATION
  Report Type: Report from Study
  Country: US (occurrence: US)
  Receive Date: 20190123
  Receipt Date: 20190123
  Transmission Date: 20190417
  Serious: Yes (Other)
  Sender: FDA-Public Use
  Company Number: US-MYLANLABS-2019M1003885

PATIENT
  Age: 42 Year
  Sex: Female

DRUGS (2)
  1. DEXAMETHASONE. [Suspect]
     Active Substance: DEXAMETHASONE
     Indication: VOMITING
     Route: 042
  2. IRINOTECAN [Suspect]
     Active Substance: IRINOTECAN
     Indication: METASTASES TO LIVER
     Dosage: 2 ML OF 100-300-MICROM DC BEAD PRELOADED WITH 100 MG IRINOTECAN
     Route: 065

REACTIONS (1)
  - Lymphopenia [Unknown]
